FAERS Safety Report 7060717-X (Version None)
Quarter: 2010Q4

REPORT INFORMATION
  Report Type: 
  Country: None (occurrence: None)
  Receive Date: 20101025
  Receipt Date: 20101017
  Transmission Date: 20110411
  Serious: Yes (Other)
  Sender: FDA-Public Use
  Company Number: GB-SANOFI-AVENTIS-2010SA048348

PATIENT
  Age: 69 Year
  Sex: Male

DRUGS (8)
  1. LANTUS [Suspect]
     Indication: TYPE 2 DIABETES MELLITUS
     Dosage: DOSE VARIES ACCORDING TO GLYCEMIA
     Route: 058
     Dates: start: 20030101
  2. SOLOSTAR [Suspect]
  3. HMG COA REDUCTASE INHIBITORS [Interacting]
  4. AMLODIPINE [Concomitant]
  5. NOVORAPID [Concomitant]
  6. HERBAL EXTRACTS [Concomitant]
  7. COZAAR [Concomitant]
     Indication: BLOOD PRESSURE
  8. METFORMIN [Concomitant]

REACTIONS (8)
  - ABNORMAL BEHAVIOUR [None]
  - BLOOD GLUCOSE INCREASED [None]
  - DRUG ADMINISTRATION ERROR [None]
  - DRUG INTERACTION [None]
  - HEADACHE [None]
  - ILL-DEFINED DISORDER [None]
  - INSOMNIA [None]
  - SUICIDAL IDEATION [None]
